FAERS Safety Report 8507720-8 (Version None)
Quarter: 2012Q2

REPORT INFORMATION
  Report Type: 
  Country: None (occurrence: None)
  Receive Date: 20120405
  Receipt Date: 20090825
  Transmission Date: 20120825
  Serious: No
  Sender: FDA-Public Use
  Company Number: PHEH2009US09011

PATIENT
  Age: 76 Year
  Sex: Female

DRUGS (5)
  1. INDERAL [Concomitant]
  2. RECLAST [Suspect]
     Dosage: 5 MG, INFUSION
     Dates: start: 20090605
  3. NEXIUM [Concomitant]
  4. PEPCID COMPLETE [Concomitant]
  5. ZOCOR [Concomitant]

REACTIONS (5)
  - RHEUMATOID FACTOR POSITIVE [None]
  - MYALGIA [None]
  - PYREXIA [None]
  - ARTHRALGIA [None]
  - ASTHENIA [None]
